FAERS Safety Report 8964417 (Version 1)
Quarter: 2012Q4

REPORT INFORMATION
  Report Type: 
  Country: US (occurrence: US)
  Receive Date: 20121214
  Receipt Date: 20121214
  Transmission Date: 20130627
  Serious: No
  Sender: FDA-Public Use
  Company Number: US-GLAXOSMITHKLINE-A0986355A

PATIENT
  Age: 74 Year
  Sex: Male

DRUGS (6)
  1. AVODART [Suspect]
     Indication: BENIGN PROSTATIC HYPERPLASIA
     Dosage: 1CAP Per day
     Route: 048
     Dates: start: 201205
  2. CADUET [Suspect]
     Indication: PRODUCT USED FOR UNKNOWN INDICATION
  3. TAMSULOSIN [Concomitant]
  4. AMLODIPINE [Concomitant]
  5. ENALAPRIL [Concomitant]
  6. BABY ASPIRIN [Concomitant]

REACTIONS (1)
  - Musculoskeletal stiffness [Not Recovered/Not Resolved]
